FAERS Safety Report 18055233 (Version 1)
Quarter: 2020Q3

REPORT INFORMATION
  Report Type: Spontaneous
  Country: US (occurrence: US)
  Receive Date: 20200721
  Receipt Date: 20200721
  Transmission Date: 20201103
  Serious: Yes (Other)
  Sender: FDA-Public Use
  Company Number: None

PATIENT
  Age: 69 Year
  Sex: Female
  Weight: 86.18 kg

DRUGS (14)
  1. CLONAZEPAM. [Concomitant]
     Active Substance: CLONAZEPAM
  2. MAGNESIUM [Concomitant]
     Active Substance: MAGNESIUM
  3. PROMETHAZINE [Concomitant]
     Active Substance: PROMETHAZINE HYDROCHLORIDE
  4. REXULTI [Concomitant]
     Active Substance: BREXPIPRAZOLE
  5. TRINTEXLIX [Concomitant]
  6. CYMBALTA [Concomitant]
     Active Substance: DULOXETINE HYDROCHLORIDE
  7. PANTAPROZOL D3 [Concomitant]
  8. MULTI [Concomitant]
  9. COPAXONE [Suspect]
     Active Substance: GLATIRAMER ACETATE
     Indication: MULTIPLE SCLEROSIS
     Dosage: ?          QUANTITY:20 MG MILLIGRAM(S);?
     Route: 058
     Dates: start: 2006, end: 20200611
  10. METOPROLOL. [Concomitant]
     Active Substance: METOPROLOL
  11. OXYCODONE [Concomitant]
     Active Substance: OXYCODONE
  12. LISINOPRIL. [Concomitant]
     Active Substance: LISINOPRIL
  13. ELIQUIS [Concomitant]
     Active Substance: APIXABAN
  14. IRON [Concomitant]
     Active Substance: IRON

REACTIONS (7)
  - Pain [None]
  - Burning sensation [None]
  - Heart rate increased [None]
  - Dyspnoea [None]
  - Chest pain [None]
  - Hypertension [None]
  - Chills [None]

NARRATIVE: CASE EVENT DATE: 20200531
